FAERS Safety Report 7058272-3 (Version None)
Quarter: 2010Q4

REPORT INFORMATION
  Report Type: 
  Country: None (occurrence: None)
  Receive Date: 20101022
  Receipt Date: 20101015
  Transmission Date: 20110411
  Serious: No
  Sender: FDA-Public Use
  Company Number: US-PFIZER INC-2010132113

PATIENT
  Sex: Female

DRUGS (1)
  1. HALCION [Suspect]
     Indication: INSOMNIA
     Dosage: UNK

REACTIONS (1)
  - DRY MOUTH [None]
